FAERS Safety Report 9349688 (Version 1)
Quarter: 2013Q2

REPORT INFORMATION
  Report Type: Spontaneous
  Country: GB (occurrence: None)
  Receive Date: 20130611
  Receipt Date: 20130611
  Transmission Date: 20140414
  Serious: Yes (Other)
  Sender: FDA-Public Use
  Company Number: GB-DEXPHARM-20130322

PATIENT
  Age: 73 Year
  Sex: Female

DRUGS (3)
  1. METRONIDAZOLE [Suspect]
     Indication: DIVERTICULITIS
     Route: 048
  2. OMEPRAZOLE [Suspect]
  3. RANITIDINE [Suspect]

REACTIONS (3)
  - Rash [None]
  - Pruritus [None]
  - No reaction on previous exposure to drug [None]
